FAERS Safety Report 9314505 (Version 3)
Quarter: 2013Q3

REPORT INFORMATION
  Report Type: Spontaneous
  Country: US (occurrence: US)
  Receive Date: 20130529
  Receipt Date: 20130730
  Transmission Date: 20140515
  Serious: Yes (Other)
  Sender: FDA-Public Use
  Company Number: US-PFIZER INC-2013161117

PATIENT
  Age: 63 Year
  Sex: Female
  Weight: 63.5 kg

DRUGS (3)
  1. ESTRING [Suspect]
     Indication: VULVOVAGINAL DRYNESS
     Dosage: UNK, EVERY 3 MONTHS
     Route: 067
     Dates: start: 200805
  2. ESTRING [Suspect]
     Dosage: UNK
     Route: 067
     Dates: start: 200808
  3. XARELTO [Concomitant]
     Indication: ANTICOAGULANT THERAPY
     Dosage: UNK, 1X/DAY

REACTIONS (5)
  - Atrial fibrillation [Unknown]
  - Product quality issue [Unknown]
  - Feeling abnormal [Unknown]
  - Vulvovaginal discomfort [Unknown]
  - Vaginal discharge [Unknown]
